FAERS Safety Report 17015600 (Version 1)
Quarter: 2019Q4

REPORT INFORMATION
  Report Type: Spontaneous
  Country: CA (occurrence: CA)
  Receive Date: 20191111
  Receipt Date: 20191111
  Transmission Date: 20200122
  Serious: Yes (Other)
  Sender: FDA-Public Use
  Company Number: CA-PFIZER INC-2019479951

PATIENT
  Age: 63 Year
  Sex: Male

DRUGS (4)
  1. AVASTIN [Suspect]
     Active Substance: BEVACIZUMAB
     Indication: GASTROINTESTINAL CARCINOMA
     Dosage: UNK
     Route: 042
  2. FLUOROURACIL. [Suspect]
     Active Substance: FLUOROURACIL
     Indication: GASTROINTESTINAL CARCINOMA
     Dosage: UNK
     Route: 042
  3. IRINOTECAN HCL [Suspect]
     Active Substance: IRINOTECAN HYDROCHLORIDE
     Indication: GASTROINTESTINAL CARCINOMA
     Dosage: UNK
     Route: 042
  4. FOLINIC ACID [Suspect]
     Active Substance: LEUCOVORIN
     Indication: GASTROINTESTINAL CARCINOMA
     Dosage: UNK
     Route: 042

REACTIONS (3)
  - Nephrolithiasis [Recovered/Resolved]
  - Product use in unapproved indication [Unknown]
  - Off label use [Unknown]
